FAERS Safety Report 16748927 (Version 1)
Quarter: 2019Q3

REPORT INFORMATION
  Report Type: Spontaneous
  Country: US (occurrence: US)
  Receive Date: 20190828
  Receipt Date: 20190828
  Transmission Date: 20191005
  Serious: No
  Sender: FDA-Public Use
  Company Number: US-ASTRAZENECA-2019SF19372

PATIENT
  Age: 25848 Day
  Sex: Male
  Weight: 89.8 kg

DRUGS (3)
  1. MORPHINE [Concomitant]
     Active Substance: MORPHINE
  2. MOVANTIK [Suspect]
     Active Substance: NALOXEGOL OXALATE
     Indication: CONSTIPATION
     Route: 048
     Dates: start: 20190814
  3. OXYCODONE [Concomitant]
     Active Substance: OXYCODONE

REACTIONS (4)
  - Bowel movement irregularity [Recovered/Resolved]
  - Gastrointestinal pain [Not Recovered/Not Resolved]
  - Product dose omission [Not Recovered/Not Resolved]
  - Feeling abnormal [Not Recovered/Not Resolved]

NARRATIVE: CASE EVENT DATE: 20190814
